FAERS Safety Report 20437562 (Version 3)
Quarter: 2022Q4

REPORT INFORMATION
  Report Type: Report from Study
  Country: FR (occurrence: FR)
  Receive Date: 20220207
  Receipt Date: 20221014
  Transmission Date: 20230113
  Serious: Yes (Death, Life-Threatening, Other)
  Sender: FDA-Public Use
  Company Number: FR-BRISTOL-MYERS SQUIBB COMPANY-BMS-2022-015208

PATIENT
  Age: 66 Year
  Sex: Male

DRUGS (3)
  1. NIVOLUMAB [Suspect]
     Active Substance: NIVOLUMAB
     Indication: Squamous cell carcinoma of head and neck
     Dosage: 240 MILLIGRAM, EVERY 15 DAYS
     Route: 065
     Dates: start: 20210621
  2. NIVOLUMAB [Suspect]
     Active Substance: NIVOLUMAB
     Route: 065
     Dates: start: 20211206
  3. NOREPINEPHRINE [Concomitant]
     Active Substance: NOREPINEPHRINE
     Indication: Product used for unknown indication
     Route: 065

REACTIONS (4)
  - Sepsis [Fatal]
  - Multiple organ dysfunction syndrome [Unknown]
  - Pneumonia escherichia [Unknown]
  - Off label use [Unknown]

NARRATIVE: CASE EVENT DATE: 20211207
